FAERS Safety Report 4955408-2 (Version None)
Quarter: 2006Q1

REPORT INFORMATION
  Report Type: 
  Country: None (occurrence: None)
  Receive Date: 20060322
  Receipt Date: 20060313
  Transmission Date: 20060701
  Serious: Yes (Other)
  Sender: FDA-Public Use
  Company Number: 2006035387

PATIENT
  Age: 78 Year
  Sex: Female
  Weight: 78.9259 kg

DRUGS (7)
  1. CELEBREX [Suspect]
     Indication: OSTEOARTHRITIS
     Dosage: 200 MG (200 MG, 1 IN 1 D), ORAL
     Route: 048
  2. AVANDIA [Concomitant]
  3. METFORMIN HCL [Concomitant]
  4. HYDROCHLOROTHIAZIDE [Concomitant]
  5. ZANTAC [Concomitant]
  6. ASPIRIN [Concomitant]
  7. MONOPRIL [Concomitant]

REACTIONS (11)
  - ABASIA [None]
  - CARDIAC PACEMAKER INSERTION [None]
  - CONDITION AGGRAVATED [None]
  - FALL [None]
  - FATIGUE [None]
  - FLUID RETENTION [None]
  - FRACTURED COCCYX [None]
  - GAIT DISTURBANCE [None]
  - LOSS OF CONSCIOUSNESS [None]
  - SWELLING [None]
  - SYNOVIAL CYST [None]
